FAERS Safety Report 8153473-5 (Version None)
Quarter: 2012Q1

REPORT INFORMATION
  Report Type: 
  Country: None (occurrence: None)
  Receive Date: 20120216
  Receipt Date: 20120216
  Transmission Date: 20120608
  Serious: No
  Sender: FDA-Public Use
  Company Number: None

PATIENT
  Sex: Female
  Weight: 65.5 kg

DRUGS (1)
  1. IRINOTECAN HCL [Suspect]
     Dosage: 310 MG (AT 180 MG/M2)
     Dates: end: 20120103

REACTIONS (1)
  - CORONARY ARTERY DISEASE [None]
